FAERS Safety Report 9606511 (Version 2)
Quarter: 2013Q4

REPORT INFORMATION
  Report Type: Spontaneous
  Country: US (occurrence: US)
  Receive Date: 20131008
  Receipt Date: 20131008
  Transmission Date: 20140711
  Serious: No
  Sender: FDA-Public Use
  Company Number: US-AMGEN-USASP2013051997

PATIENT
  Age: 63 Year
  Sex: Female
  Weight: 66.67 kg

DRUGS (7)
  1. PROLIA [Suspect]
     Indication: OSTEOPOROSIS POSTMENOPAUSAL
     Dosage: 60 MG, Q6MO
     Route: 058
     Dates: start: 20130424
  2. PROLIA [Suspect]
     Dosage: 60 MG, Q6MO
     Route: 058
     Dates: start: 20121016
  3. PROLIA [Suspect]
     Dosage: 60 MG, Q6MO
     Route: 065
     Dates: start: 20120423
  4. CELEBREX [Concomitant]
     Dosage: UNK
     Route: 048
  5. CELEXA                             /00582602/ [Concomitant]
     Dosage: UNK
     Route: 048
  6. METFORMIN [Concomitant]
     Dosage: UNK
  7. SIMVASTATIN [Concomitant]
     Dosage: UNK

REACTIONS (2)
  - Arthralgia [Unknown]
  - Groin pain [Not Recovered/Not Resolved]
